FAERS Safety Report 9001279 (Version 1)
Quarter: 2013Q1

REPORT INFORMATION
  Report Type: Spontaneous
  Country: US (occurrence: US)
  Receive Date: 20130107
  Receipt Date: 20130107
  Transmission Date: 20140127
  Serious: Yes (Death)
  Sender: FDA-Public Use
  Company Number: US-PFIZER INC-2013005849

PATIENT
  Age: 63 Year
  Sex: Male

DRUGS (7)
  1. VERAPAMIL HCL [Suspect]
     Dosage: UNK
  2. TOLTERODINE TARTRATE [Suspect]
  3. ZOLPIDEM [Suspect]
  4. MIRTAZAPINE [Suspect]
  5. TAMSULOSIN [Suspect]
  6. BUPROPION [Suspect]
  7. VALPROIC ACID [Suspect]

REACTIONS (1)
  - Completed suicide [Fatal]
